FAERS Safety Report 14381741 (Version 1)
Quarter: 2018Q1

REPORT INFORMATION
  Report Type: Spontaneous
  Country: DE (occurrence: DE)
  Receive Date: 20180112
  Receipt Date: 20180112
  Transmission Date: 20180509
  Serious: Yes (Other)
  Sender: FDA-Public Use
  Company Number: DE-TEVA-2017-DE-835651

PATIENT
  Sex: Female

DRUGS (3)
  1. MALARONE [Suspect]
     Active Substance: ATOVAQUONE\PROGUANIL HYDROCHLORIDE
     Indication: PRODUCT USED FOR UNKNOWN INDICATION
     Route: 065
  2. TEGRETAL [Interacting]
     Active Substance: CARBAMAZEPINE
     Indication: EPILEPSY
     Route: 065
  3. ATORVASTATIN [Suspect]
     Active Substance: ATORVASTATIN
     Indication: PRODUCT USED FOR UNKNOWN INDICATION
     Route: 065
     Dates: start: 2017

REACTIONS (6)
  - Vertigo [Recovered/Resolved]
  - Paraesthesia [Recovered/Resolved]
  - Nonspecific reaction [Recovered/Resolved]
  - Anticonvulsant drug level decreased [Unknown]
  - Drug interaction [Recovered/Resolved]
  - Carotid artery stenosis [Unknown]

NARRATIVE: CASE EVENT DATE: 2017
